FAERS Safety Report 8130464-1 (Version None)
Quarter: 2012Q1

REPORT INFORMATION
  Report Type: 
  Country: None (occurrence: None)
  Receive Date: 20120210
  Receipt Date: 20120202
  Transmission Date: 20120608
  Serious: Yes (Hospitalization)
  Sender: FDA-Public Use
  Company Number: US-MERCK-1110USA03835

PATIENT
  Age: 72 Year
  Sex: Female

DRUGS (3)
  1. ALENDRONATE SODIUM [Suspect]
     Indication: OSTEOPOROSIS
     Route: 048
     Dates: start: 20080520, end: 20080923
  2. ALENDRONATE SODIUM [Suspect]
     Route: 048
     Dates: start: 20100203, end: 20101106
  3. FOSAMAX [Suspect]
     Indication: OSTEOPOROSIS
     Route: 048
     Dates: start: 20051101, end: 20101201

REACTIONS (16)
  - PNEUMONIA [None]
  - GASTROINTESTINAL DISORDER [None]
  - CALCIUM DEFICIENCY [None]
  - PULMONARY EMBOLISM [None]
  - HYPERTENSION [None]
  - FEMUR FRACTURE [None]
  - GASTROOESOPHAGEAL REFLUX DISEASE [None]
  - BACK PAIN [None]
  - ALVEOLITIS [None]
  - ANXIETY [None]
  - CHRONIC OBSTRUCTIVE PULMONARY DISEASE [None]
  - ARTHRITIS [None]
  - INTERSTITIAL LUNG DISEASE [None]
  - FALL [None]
  - CARDIOMEGALY [None]
  - BLOOD CHOLESTEROL INCREASED [None]
